FAERS Safety Report 20782198 (Version 1)
Quarter: 2022Q2

REPORT INFORMATION
  Report Type: Spontaneous
  Country: GB (occurrence: None)
  Receive Date: 20220504
  Receipt Date: 20220504
  Transmission Date: 20220720
  Serious: Yes (Other)
  Sender: FDA-Public Use
  Company Number: GB-MHRA-MED-202204271919068520-PBEMD

PATIENT
  Sex: Female

DRUGS (2)
  1. METHOTREXATE [Suspect]
     Active Substance: METHOTREXATE
     Indication: Arthritis
     Route: 065
  2. METHOTREXATE [Suspect]
     Active Substance: METHOTREXATE
     Route: 065
     Dates: start: 20220406

REACTIONS (5)
  - Product quality issue [Unknown]
  - Medication error [Unknown]
  - Vomiting projectile [Not Recovered/Not Resolved]
  - Malaise [Unknown]
  - Product complaint [Unknown]

NARRATIVE: CASE EVENT DATE: 20220406
